FAERS Safety Report 20296285 (Version 1)
Quarter: 2022Q1

REPORT INFORMATION
  Report Type: Spontaneous
  Country: US (occurrence: None)
  Receive Date: 20220105
  Receipt Date: 20220105
  Transmission Date: 20220423
  Serious: Yes (Hospitalization)
  Sender: FDA-Public Use
  Company Number: US-SUPERNUS Pharmaceuticals, Inc.-SUP202112-002630

PATIENT
  Age: 55 Year
  Sex: Female

DRUGS (2)
  1. TOPIRAMATE [Suspect]
     Active Substance: TOPIRAMATE
     Indication: Myoclonus
     Dosage: NOT PROVIDED
  2. METHYLPREDNISOLONE [Concomitant]
     Active Substance: METHYLPREDNISOLONE
     Indication: Multiple sclerosis relapse
     Dosage: NOT PROVIDED

REACTIONS (6)
  - Hypernatraemia [Recovered/Resolved]
  - Osmotic demyelination syndrome [Unknown]
  - Renal tubular acidosis [Unknown]
  - Hypokalaemia [Recovering/Resolving]
  - Hypotension [Unknown]
  - Product use in unapproved indication [Unknown]
